FAERS Safety Report 10884919 (Version 2)
Quarter: 2015Q1

REPORT INFORMATION
  Report Type: Report from Study
  Country: BR (occurrence: BR)
  Receive Date: 20150304
  Receipt Date: 20150317
  Transmission Date: 20150721
  Serious: Yes (Other)
  Sender: FDA-Public Use
  Company Number: BR-SA-2015SA025240

PATIENT
  Age: 74 Year
  Sex: Male
  Weight: 89 kg

DRUGS (2)
  1. SOMALGIN [Suspect]
     Active Substance: ASPIRIN\DIHYDROXYALUMINUM AMINOACETATE ANHYDROUS\MAGNESIUM CARBONATE
     Indication: ANTICOAGULANT THERAPY
     Dosage: STARTED SINCE 3 YEARS; FREQUENCY: NI TABLETS A DAY.
     Route: 048
  2. LANTUS [Suspect]
     Active Substance: INSULIN GLARGINE
     Indication: TYPE 2 DIABETES MELLITUS
     Dosage: LANTUS (INSULIN GLARGINE) 3 ML CARTRIDGE STARTED SINCE MORE THAN 10 YEARS AGO
     Route: 058

REACTIONS (8)
  - Haematoma [Not Recovered/Not Resolved]
  - Sciatica [Recovered/Resolved]
  - Gait disturbance [Recovered/Resolved]
  - Acquired claw toe [Recovered/Resolved]
  - Tendon disorder [Recovered/Resolved]
  - Pain in extremity [Recovered/Resolved]
  - Coronary arterial stent insertion [Unknown]
  - Renal artery stent placement [Unknown]

NARRATIVE: CASE EVENT DATE: 2011
